FAERS Safety Report 9688473 (Version 1)
Quarter: 2013Q4

REPORT INFORMATION
  Report Type: Spontaneous
  Country: US (occurrence: None)
  Receive Date: 20131112
  Receipt Date: 20131112
  Transmission Date: 20140711
  Serious: Yes (Other)
  Sender: FDA-Public Use
  Company Number: KAD201310-001491

PATIENT
  Age: 57 Year
  Sex: Female
  Weight: 56.6 kg

DRUGS (2)
  1. RIBASPHERE RIBAPAK (RIBAVIRIN) [Suspect]
     Indication: HEPATITIS C
     Dates: start: 20130327
  2. PEGASYS (PEGINTERFERON ALFA-2A) [Suspect]
     Indication: HEPATITIS C
     Dosage: 180 MCG, SUBCUTANEOUSLY., WEEKLY.
     Route: 058
     Dates: start: 20130327

REACTIONS (4)
  - Anaemia [None]
  - Cryoglobulinaemia [None]
  - Condition aggravated [None]
  - Blood count abnormal [None]
